FAERS Safety Report 23097764 (Version 1)
Quarter: 2023Q4

REPORT INFORMATION
  Report Type: Spontaneous
  Country: US (occurrence: None)
  Receive Date: 20231019
  Receipt Date: 20231019
  Transmission Date: 20240110
  Serious: Yes (Hospitalization)
  Sender: FDA-Public Use
  Company Number: None

PATIENT
  Age: 52 Year
  Sex: Male
  Weight: 108 kg

DRUGS (1)
  1. WARFARIN SODIUM [Suspect]
     Active Substance: WARFARIN SODIUM
     Dates: start: 20170530

REACTIONS (6)
  - Haematemesis [None]
  - Anticoagulation drug level above therapeutic [None]
  - Diarrhoea [None]
  - Illness [None]
  - Hypophagia [None]
  - Vitamin K decreased [None]

NARRATIVE: CASE EVENT DATE: 20230214
